FAERS Safety Report 6060179-5 (Version None)
Quarter: 2009Q1

REPORT INFORMATION
  Report Type: 
  Country: None (occurrence: None)
  Receive Date: 20090128
  Receipt Date: 20090113
  Transmission Date: 20090719
  Serious: Yes (Hospitalization)
  Sender: FDA-Public Use
  Company Number: 2008PV037099

PATIENT
  Age: 1 Day
  Sex: Female
  Weight: 4.9896 kg

DRUGS (3)
  1. SYMLIN [Suspect]
     Dosage: 90 MCG; TID; SC
     Route: 058
     Dates: start: 20080109, end: 20080123
  2. NOVOLOG [Suspect]
     Dosage: SC
     Route: 058
     Dates: start: 20080109, end: 20080919
  3. LEVEMIR [Suspect]
     Dosage: SC
     Route: 058
     Dates: start: 20080109, end: 20080919

REACTIONS (12)
  - BLOOD GLUCOSE DECREASED [None]
  - CAESAREAN SECTION [None]
  - DERMATITIS DIAPER [None]
  - DRUG EXPOSURE DURING PREGNANCY [None]
  - ECZEMA INFANTILE [None]
  - FEEDING DISORDER NEONATAL [None]
  - HYPOGLYCAEMIA NEONATAL [None]
  - JAUNDICE NEONATAL [None]
  - LARGE FOR DATES BABY [None]
  - PRODUCT QUALITY ISSUE [None]
  - SEBORRHOEIC DERMATITIS [None]
  - WEIGHT DECREASE NEONATAL [None]
